FAERS Safety Report 8013629-9 (Version None)
Quarter: 2011Q4

REPORT INFORMATION
  Report Type: 
  Country: None (occurrence: None)
  Receive Date: 20111229
  Receipt Date: 20111227
  Transmission Date: 20120403
  Serious: Yes (Other)
  Sender: FDA-Public Use
  Company Number: US-PFIZER INC-2011314379

PATIENT
  Sex: Female
  Weight: 63.492 kg

DRUGS (4)
  1. LIPITOR [Concomitant]
     Indication: BLOOD CHOLESTEROL INCREASED
     Dosage: UNK
  2. LYRICA [Suspect]
     Indication: FIBROMYALGIA
  3. LYRICA [Suspect]
     Indication: ARTHRALGIA
     Dosage: 50 MG, 1X/DAY
     Route: 048
     Dates: start: 20110901, end: 20111101
  4. LEXAPRO [Concomitant]
     Dosage: UNK

REACTIONS (6)
  - DRUG INEFFECTIVE [None]
  - PAIN [None]
  - MOOD ALTERED [None]
  - ASTHENIA [None]
  - DIZZINESS [None]
  - SOMNOLENCE [None]
